FAERS Safety Report 14522393 (Version 2)
Quarter: 2018Q1

REPORT INFORMATION
  Report Type: Spontaneous
  Country: US (occurrence: US)
  Receive Date: 20180212
  Receipt Date: 20180316
  Transmission Date: 20180509
  Serious: No
  Sender: FDA-Public Use
  Company Number: US-INCYTE CORPORATION-2018IN000903

PATIENT

DRUGS (1)
  1. JAKAFI [Suspect]
     Active Substance: RUXOLITINIB
     Indication: MYELOFIBROSIS
     Dosage: 10 MG, BID
     Route: 048
     Dates: start: 201505

REACTIONS (4)
  - Treatment noncompliance [Unknown]
  - Haematocrit abnormal [Unknown]
  - Abnormal behaviour [Unknown]
  - Memory impairment [Unknown]

NARRATIVE: CASE EVENT DATE: 201710
